FAERS Safety Report 5403419-5 (Version None)
Quarter: 2007Q3

REPORT INFORMATION
  Report Type: 
  Country: None (occurrence: None)
  Receive Date: 20070713
  Receipt Date: 20070509
  Transmission Date: 20080115
  Serious: Yes (Hospitalization)
  Sender: FDA-Public Use
  Company Number: US-JNJFOC-20061102626

PATIENT
  Age: 35 Year
  Sex: Female
  Weight: 82 kg

DRUGS (3)
  1. ORTHO EVRA [Suspect]
     Indication: DRUG USE FOR UNKNOWN INDICATION
     Dosage: TRANSDERMAL
     Route: 062
     Dates: start: 20041201, end: 20050501
  2. TYLENOL W/ CODEINE NO. 3 [Concomitant]
  3. FLEXERIL [Concomitant]

REACTIONS (2)
  - MYOCARDIAL INFARCTION [None]
  - PULMONARY EMBOLISM [None]
